FAERS Safety Report 22253132 (Version 1)
Quarter: 2023Q2

REPORT INFORMATION
  Report Type: Other
  Country: US (occurrence: US)
  Receive Date: 20230426
  Receipt Date: 20230426
  Transmission Date: 20230722
  Serious: Yes (Life-Threatening, Hospitalization, Other)
  Sender: FDA-Public Use
  Company Number: US-BoehringerIngelheim-2023-BI-232594

PATIENT
  Age: 55 Year
  Sex: Female

DRUGS (5)
  1. ALTEPLASE [Suspect]
     Active Substance: ALTEPLASE
     Indication: Pulmonary embolism
     Route: 042
  2. EPINEPHRINE [Concomitant]
     Active Substance: EPINEPHRINE
     Indication: Pulmonary embolism
  3. NOREPINEPHRINE [Concomitant]
     Active Substance: NOREPINEPHRINE
     Indication: Pulmonary embolism
  4. HEPARIN [Concomitant]
     Active Substance: HEPARIN SODIUM
  5. BIVALIRUDIN [Concomitant]
     Active Substance: BIVALIRUDIN
     Indication: Product used for unknown indication

REACTIONS (14)
  - Haemorrhage [Unknown]
  - Drug ineffective [Unknown]
  - Atelectasis [Unknown]
  - Pulmonary embolism [Unknown]
  - Hypercapnia [Unknown]
  - Acidosis [Unknown]
  - Electrocardiogram ST-T segment abnormal [Unknown]
  - Blood antidiuretic hormone increased [Unknown]
  - Atrial fibrillation [Unknown]
  - Upper gastrointestinal haemorrhage [Unknown]
  - Respiratory disorder [Unknown]
  - Wound infection [Unknown]
  - Decubitus ulcer [Unknown]
  - Cardiovascular disorder [Unknown]
